FAERS Safety Report 24035676 (Version 1)
Quarter: 2024Q3

REPORT INFORMATION
  Report Type: Spontaneous
  Country: US (occurrence: US)
  Receive Date: 20240701
  Receipt Date: 20240701
  Transmission Date: 20241016
  Serious: No
  Sender: INSUD PHARMA
  Company Number: US-INSUD PHARMA-2406US05088

PATIENT

DRUGS (1)
  1. RAMELTEON [Suspect]
     Active Substance: RAMELTEON
     Indication: Sleep disorder
     Dosage: TOOK TWICE
     Route: 048
     Dates: start: 2024

REACTIONS (4)
  - Feeling drunk [Unknown]
  - Sluggishness [Unknown]
  - Somnolence [Unknown]
  - Drug ineffective [Unknown]

NARRATIVE: CASE EVENT DATE: 20240101
